FAERS Safety Report 8469701 (Version 2)
Quarter: 2013Q3

REPORT INFORMATION
  Report Type: Report from Study
  Country: US (occurrence: US)
  Receive Date: 20120321
  Receipt Date: 20130701
  Transmission Date: 20140515
  Serious: Yes (Hospitalization)
  Sender: FDA-Public Use
  Company Number: US-ELI_LILLY_AND_COMPANY-US201203003454

PATIENT
  Age: 50 Year
  Sex: Female

DRUGS (5)
  1. DULOXETINE HYDROCHLORIDE [Suspect]
  2. LISINOPRIL [Concomitant]
     Dosage: UNK, UNKNOWN
  3. HYDROCHLOROTHIAZIDE [Concomitant]
     Dosage: UNK, UNKNOWN
  4. MELOXICAM [Concomitant]
     Dosage: UNK, UNKNOWN
  5. AMITRIPTYLINE [Concomitant]
     Dosage: UNK, UNKNOWN

REACTIONS (10)
  - Fibromyalgia [Unknown]
  - Swelling [Unknown]
  - Arthritis [Unknown]
  - Drug withdrawal syndrome [Not Recovered/Not Resolved]
  - Drug withdrawal headache [Not Recovered/Not Resolved]
  - Fatigue [Not Recovered/Not Resolved]
  - Anxiety [Not Recovered/Not Resolved]
  - Inappropriate schedule of drug administration [Recovered/Resolved]
  - Vision blurred [Unknown]
  - Crying [Unknown]
